FAERS Safety Report 25804713 (Version 3)
Quarter: 2025Q4

REPORT INFORMATION
  Report Type: Report from Study
  Country: CA (occurrence: CA)
  Receive Date: 20250915
  Receipt Date: 20251111
  Transmission Date: 20260119
  Serious: Yes (Other)
  Sender: JOHNSON AND JOHNSON
  Company Number: CA-JNJFOC-20250916915

PATIENT
  Age: 82 Year
  Sex: Male
  Weight: 91 kg

DRUGS (3)
  1. REMICADE [Suspect]
     Active Substance: INFLIXIMAB
     Indication: Crohn^s disease
     Route: 041
     Dates: start: 20210205
  2. REMICADE [Suspect]
     Active Substance: INFLIXIMAB
     Route: 041
  3. ORGOVYX [Suspect]
     Active Substance: RELUGOLIX
     Indication: Prostate cancer

REACTIONS (5)
  - Prostate cancer [Unknown]
  - Blood potassium increased [Recovered/Resolved]
  - Crohn^s disease [Recovering/Resolving]
  - Abscess [Recovering/Resolving]
  - General physical health deterioration [Unknown]

NARRATIVE: CASE EVENT DATE: 20250901
